FAERS Safety Report 12166259 (Version 3)
Quarter: 2016Q2

REPORT INFORMATION
  Report Type: Report from Study
  Country: CN (occurrence: CN)
  Receive Date: 20160309
  Receipt Date: 20160602
  Transmission Date: 20160815
  Serious: Yes (Hospitalization, Other)
  Sender: FDA-Public Use
  Company Number: PHHY2016CN029931

PATIENT
  Age: 25 Year
  Sex: Female
  Weight: 51 kg

DRUGS (141)
  1. MYFORTIC [Suspect]
     Active Substance: MYCOPHENOLATE SODIUM
     Dosage: 1440 MG, QD
     Route: 065
     Dates: start: 20151205, end: 20151205
  2. MYFORTIC [Suspect]
     Active Substance: MYCOPHENOLATE SODIUM
     Dosage: 540 MG, QD
     Route: 065
     Dates: start: 20151218, end: 20151221
  3. METHYLPREDNISOLONE. [Suspect]
     Active Substance: METHYLPREDNISOLONE
     Dosage: 40 MG,SOS
     Route: 065
     Dates: start: 20151218, end: 20151218
  4. TACROLIMUS. [Suspect]
     Active Substance: TACROLIMUS
     Indication: RENAL TRANSPLANT
     Dosage: 5 MG, QD
     Route: 065
     Dates: start: 20151205, end: 20151213
  5. TACROLIMUS. [Suspect]
     Active Substance: TACROLIMUS
     Dosage: 3.5 MG, QD
     Route: 065
     Dates: start: 20151216, end: 20151224
  6. TACROLIMUS. [Suspect]
     Active Substance: TACROLIMUS
     Dosage: 3 MG, QD
     Route: 065
     Dates: start: 20160111, end: 20160112
  7. TACROLIMUS. [Suspect]
     Active Substance: TACROLIMUS
     Dosage: 3 MG, QD
     Route: 065
     Dates: start: 20160118
  8. FK 506 [Concomitant]
     Active Substance: TACROLIMUS
     Dosage: 2.5 MG, UNK
     Route: 065
  9. SODIUM CHLORIDE COMPOUND INJECTION [Concomitant]
     Dosage: 50 ML, UNK
     Route: 042
     Dates: start: 20151204, end: 20151204
  10. MOXIFLOXACIN//MOXIFLOXACIN HYDROCHLORIDE [Concomitant]
     Indication: INFLAMMATION
     Dosage: 400 MG, QD
     Route: 042
     Dates: start: 20151210, end: 20151214
  11. ADALAT [Concomitant]
     Active Substance: NIFEDIPINE
     Dosage: 30 MG, SOS
     Route: 048
     Dates: start: 20151207, end: 20151207
  12. ADALAT [Concomitant]
     Active Substance: NIFEDIPINE
     Dosage: 30 MG, QD
     Route: 048
     Dates: start: 20151209, end: 20151211
  13. BISOPROLOL FUMARATE. [Concomitant]
     Active Substance: BISOPROLOL FUMARATE
     Dosage: 5 MG, QD
     Route: 065
     Dates: start: 20160101
  14. LIVARACINE [Concomitant]
     Indication: ANTICOAGULANT THERAPY
     Dosage: 2500 IU,SOS
     Route: 061
     Dates: start: 20151218, end: 20151218
  15. PANTOPRAZOLE [Concomitant]
     Active Substance: PANTOPRAZOLE SODIUM
     Indication: GASTROOESOPHAGEAL REFLUX PROPHYLAXIS
     Dosage: 40 MG, SOS
     Route: 042
     Dates: start: 20151204, end: 20151204
  16. DOPAMINE HYCROCHLORIDE [Concomitant]
     Active Substance: DOPAMINE HYDROCHLORIDE
     Indication: POOR PERIPHERAL CIRCULATION
     Dosage: 10 MG, SOS
     Route: 042
     Dates: start: 20151221, end: 20151221
  17. POLYENE PHOSPHATIDYLCHOLINE [Concomitant]
     Active Substance: PHOSPHOLIPID
     Dosage: 456 MG, TID
     Route: 048
     Dates: start: 20151224, end: 20151228
  18. POLYENE PHOSPHATIDYLCHOLINE [Concomitant]
     Active Substance: PHOSPHOLIPID
     Dosage: 226 MG, TID
     Route: 048
     Dates: start: 20160101
  19. FUROSEMID ^DAK^ [Concomitant]
     Dosage: 40 MG, SOS
     Route: 042
     Dates: start: 20151204, end: 20151204
  20. MYFORTIC [Suspect]
     Active Substance: MYCOPHENOLATE SODIUM
     Dosage: 720 MG, QD
     Route: 065
     Dates: start: 20151208, end: 20151209
  21. MYFORTIC [Suspect]
     Active Substance: MYCOPHENOLATE SODIUM
     Dosage: 720 MG, QD
     Route: 065
     Dates: start: 20151210, end: 20151217
  22. MYFORTIC [Suspect]
     Active Substance: MYCOPHENOLATE SODIUM
     Dosage: 720 MG, QD
     Route: 065
     Dates: start: 20151222, end: 20160107
  23. MYFORTIC [Suspect]
     Active Substance: MYCOPHENOLATE SODIUM
     Dosage: 540 MG, QD
     Route: 065
     Dates: start: 20160101
  24. BASILIXIMAB [Suspect]
     Active Substance: BASILIXIMAB
     Dosage: 20 MG, QD
     Route: 065
     Dates: start: 20151207, end: 20151207
  25. PREDNISONE. [Suspect]
     Active Substance: PREDNISONE
     Indication: RENAL TRANSPLANT
     Dosage: 20 MG, QD
     Route: 065
     Dates: start: 20151206, end: 20151219
  26. TACROLIMUS. [Suspect]
     Active Substance: TACROLIMUS
     Dosage: 3 MG, QD
     Route: 065
     Dates: start: 20151225, end: 20160112
  27. CRAVIT [Concomitant]
     Active Substance: LEVOFLOXACIN
     Indication: INFLAMMATION
     Dosage: 100 ML, SOS
     Route: 042
     Dates: start: 20151203, end: 20151203
  28. SMECTA [Concomitant]
     Active Substance: MONTMORILLONITE
     Dosage: 3000 MG, TID
     Route: 048
     Dates: start: 20160110, end: 20160110
  29. MUCOSOLVAN [Concomitant]
     Active Substance: AMBROXOL HYDROCHLORIDE
     Indication: PRODUCTIVE COUGH
     Dosage: 15 MG, TID
     Route: 055
     Dates: start: 20151204, end: 20151223
  30. MUCOSOLVAN [Concomitant]
     Active Substance: AMBROXOL HYDROCHLORIDE
     Dosage: 15 MG, SOS
     Route: 055
     Dates: start: 20151204, end: 20151223
  31. FUROSEMID ^DAK^ [Concomitant]
     Dosage: 40 MG, SOS
     Route: 042
     Dates: start: 20151219, end: 20151219
  32. MEPREDNISONE [Concomitant]
     Active Substance: MEPREDNISONE
     Indication: PROPHYLAXIS AGAINST TRANSPLANT REJECTION
     Dosage: 15 MG, QD
     Route: 065
     Dates: start: 20160108, end: 20160214
  33. MYFORTIC [Suspect]
     Active Substance: MYCOPHENOLATE SODIUM
     Indication: RENAL TRANSPLANT
     Dosage: 720 MG, QD
     Route: 065
     Dates: start: 20151203, end: 20151203
  34. SODIUM CHLORIDE COMPOUND INJECTION [Concomitant]
     Dosage: 100 ML, QD
     Route: 042
     Dates: start: 20151204, end: 20151206
  35. SODIUM CHLORIDE COMPOUND INJECTION [Concomitant]
     Dosage: 100 ML, SOS
     Route: 042
     Dates: start: 20151207, end: 20151207
  36. SODIUM CHLORIDE COMPOUND INJECTION [Concomitant]
     Dosage: 100 ML, SOS
     Route: 042
     Dates: start: 20151218, end: 20151218
  37. BISOPROLOL FUMARATE. [Concomitant]
     Active Substance: BISOPROLOL FUMARATE
     Dosage: 5 MG, QD
     Route: 048
     Dates: start: 20151210, end: 20151223
  38. BACTERIAL LYSATES [Concomitant]
     Dosage: 7 MG, QD
     Route: 065
     Dates: start: 20151224, end: 20151224
  39. LIVARACINE [Concomitant]
     Dosage: 2500 IU, SOS
     Route: 042
     Dates: start: 20151225, end: 20151225
  40. ALOSTIN//ALPROSTADIL [Concomitant]
     Indication: POOR PERIPHERAL CIRCULATION
     Dosage: 10 OT, QD
     Route: 042
     Dates: start: 20151204, end: 20151204
  41. SCOPOLAMINE HYDROBROMIDE. [Concomitant]
     Active Substance: SCOPOLAMINE HYDROBROMIDE
     Indication: GASTROOESOPHAGEAL REFLUX PROPHYLAXIS
     Dosage: 300 MG, SOS
     Route: 030
     Dates: start: 20151230, end: 20151230
  42. CEFOPERAZONE SODIUM W/SULBACTAM SODIUM [Concomitant]
     Indication: INFLAMMATION
     Dosage: 1500 MG, BID
     Route: 042
     Dates: start: 20151210, end: 20151216
  43. CEFOPERAZONE SODIUM W/SULBACTAM SODIUM [Concomitant]
     Indication: INFECTION PROPHYLAXIS
     Dosage: 1500 MG, BID
     Route: 042
     Dates: start: 20151217, end: 20151221
  44. SMECTA [Concomitant]
     Active Substance: MONTMORILLONITE
     Dosage: 6 G, SOS
     Route: 048
     Dates: start: 20151229, end: 20151229
  45. SMECTA [Concomitant]
     Active Substance: MONTMORILLONITE
     Dosage: 3 G, SOS
     Route: 048
     Dates: start: 20160110, end: 20160110
  46. PHOSPHOCREATINE SODIUM [Concomitant]
     Dosage: 1 G, SOS
     Route: 042
     Dates: start: 20151204, end: 20151218
  47. POLYENE PHOSPHATIDYLCHOLINE [Concomitant]
     Active Substance: PHOSPHOLIPID
     Indication: PROPHYLAXIS
     Dosage: 456 MG, TID
     Route: 048
     Dates: start: 20151217, end: 20151223
  48. COENZYME [Concomitant]
     Active Substance: UBIDECARENONE
     Indication: SUPPLEMENTATION THERAPY
     Dosage: 2 DF, QD
     Route: 042
     Dates: start: 20151204, end: 20151204
  49. COENZYME [Concomitant]
     Active Substance: UBIDECARENONE
     Dosage: 2 DF,  SOS
     Route: 042
     Dates: start: 20151204, end: 20151205
  50. MUCOSOLVAN [Concomitant]
     Active Substance: AMBROXOL HYDROCHLORIDE
     Dosage: 30 MG, BID
     Route: 042
     Dates: start: 20151224, end: 20151230
  51. FUROSEMID ^DAK^ [Concomitant]
     Indication: POLYURIA
     Dosage: 40 MG, SOS
     Route: 042
     Dates: start: 20151202, end: 20151202
  52. FUROSEMID ^DAK^ [Concomitant]
     Dosage: 120 MG, SOS
     Route: 042
     Dates: start: 20151204, end: 20151204
  53. FUROSEMID ^DAK^ [Concomitant]
     Dosage: 40 MG, SOS
     Route: 042
     Dates: start: 20151222, end: 20151222
  54. FUROSEMID ^DAK^ [Concomitant]
     Dosage: 40 MG, QD
     Route: 042
     Dates: start: 20151222, end: 20151223
  55. MEPREDNISONE [Concomitant]
     Active Substance: MEPREDNISONE
     Dosage: 8 MG, UNK
     Route: 065
     Dates: start: 20160215
  56. MYFORTIC [Suspect]
     Active Substance: MYCOPHENOLATE SODIUM
     Dosage: 1080 MG, QD
     Route: 065
     Dates: start: 20151206, end: 20151207
  57. METHYLPREDNISOLONE. [Suspect]
     Active Substance: METHYLPREDNISOLONE
     Indication: RENAL TRANSPLANT
     Dosage: 500 MG, QD
     Route: 065
     Dates: start: 20151203, end: 20151203
  58. METHYLPREDNISOLONE. [Suspect]
     Active Substance: METHYLPREDNISOLONE
     Dosage: 360 MG, QD
     Route: 065
     Dates: start: 20151206, end: 20151206
  59. METHYLPREDNISOLONE. [Suspect]
     Active Substance: METHYLPREDNISOLONE
     Dosage: UNK
  60. TACROLIMUS. [Suspect]
     Active Substance: TACROLIMUS
     Dosage: 3.5 MG, QD
     Route: 065
     Dates: start: 20151213, end: 20151217
  61. TACROLIMUS. [Suspect]
     Active Substance: TACROLIMUS
     Dosage: 4.5 MG, QD
     Route: 065
     Dates: start: 20151213, end: 20151217
  62. SODIUM CHLORIDE COMPOUND INJECTION [Concomitant]
     Dosage: 100 ML, SOS
     Route: 042
     Dates: start: 20151211, end: 20151211
  63. GLUTATHIONE [Concomitant]
     Active Substance: GLUTATHIONE
     Dosage: 900 MG, SOS
     Route: 042
     Dates: start: 20151204, end: 20151217
  64. ALBUMIN [Concomitant]
     Active Substance: ALBUMIN HUMAN
     Indication: SUPPLEMENTATION THERAPY
     Dosage: 20 G, SOS
     Route: 042
     Dates: start: 20151204, end: 20151204
  65. ADALAT [Concomitant]
     Active Substance: NIFEDIPINE
     Dosage: 30 MG, SOS
     Route: 048
     Dates: start: 20151208, end: 20151208
  66. BISOPROLOL FUMARATE. [Concomitant]
     Active Substance: BISOPROLOL FUMARATE
     Indication: HYPERTENSION
     Dosage: 5 MG, QD
     Route: 048
     Dates: start: 20151210, end: 20151210
  67. BACTERIAL LYSATES [Concomitant]
     Dosage: 7 MG, QD
     Route: 048
     Dates: start: 20151213, end: 20151223
  68. CRAVIT [Concomitant]
     Active Substance: LEVOFLOXACIN
     Dosage: 100 ML, QD
     Route: 042
     Dates: start: 20151204, end: 20151208
  69. ALOSTIN//ALPROSTADIL [Concomitant]
     Dosage: 10 OT, QD
     Route: 042
     Dates: start: 20151204, end: 20151223
  70. MEROPENEM. [Concomitant]
     Active Substance: MEROPENEM
     Indication: INFECTION PROPHYLAXIS
     Dosage: 500 MG, TID
     Route: 042
     Dates: start: 20151221, end: 20151222
  71. PANTOPRAZOLE [Concomitant]
     Active Substance: PANTOPRAZOLE SODIUM
     Dosage: 40 MG, QD
     Route: 042
     Dates: start: 20151220, end: 20151223
  72. DICLOFENAC SODIUM W/LIDOCAINE HYDROCHLORIDE [Concomitant]
     Indication: ANALGESIC THERAPY
  73. SMECTA [Concomitant]
     Active Substance: MONTMORILLONITE
     Indication: DIARRHOEA
     Dosage: 6 G, SOS
     Route: 048
     Dates: start: 20151206, end: 20151206
  74. CETIRIZINE HYDROCHLORIDE. [Concomitant]
     Active Substance: CETIRIZINE HYDROCHLORIDE
     Dosage: 10 MG, SOS
     Route: 048
     Dates: start: 20151225, end: 20151225
  75. ALLERZIN//PROMETHAZINE HYDROCHLORIDE [Concomitant]
     Dosage: 25 MG, SOS
     Route: 030
     Dates: start: 20151220, end: 20151225
  76. POLYENE PHOSPHATIDYLCHOLINE [Concomitant]
     Active Substance: PHOSPHOLIPID
     Dosage: 228 MG, TID
     Route: 048
     Dates: start: 20151228, end: 20151230
  77. RECOMBINANT HUMAN ERYTHROPOIETIN [Concomitant]
     Active Substance: ERYTHROPOIETIN
     Dosage: 1000 IU, SOS
     Route: 061
     Dates: start: 20151211, end: 20151211
  78. CEFOTIAM [Concomitant]
     Active Substance: CEFOTIAM
     Indication: INFLAMMATION
     Dosage: 1000 MG, BID
     Route: 042
     Dates: start: 20151204, end: 20151204
  79. MUCOSOLVAN [Concomitant]
     Active Substance: AMBROXOL HYDROCHLORIDE
     Dosage: 15 MG, TID
     Route: 055
     Dates: start: 20151224, end: 20151230
  80. METHYLPREDNISOLONE. [Suspect]
     Active Substance: METHYLPREDNISOLONE
     Dosage: 40 MG,SOS
     Route: 065
     Dates: start: 20151211, end: 20151211
  81. SODIUM CHLORIDE COMPOUND INJECTION [Concomitant]
     Indication: INFUSION
     Dosage: 1000 ML, QD
     Route: 042
     Dates: start: 20151204, end: 20151204
  82. BACTERIAL LYSATES [Concomitant]
     Indication: INFECTION PROPHYLAXIS
     Dosage: 7 MG, QD
     Route: 048
     Dates: start: 20151213, end: 20151215
  83. LIVARACINE [Concomitant]
     Dosage: 2500 IU,SOS
     Route: 061
     Dates: start: 20151219, end: 20151219
  84. DILTIAZEM HYDROCHLORIDE. [Concomitant]
     Active Substance: DILTIAZEM HYDROCHLORIDE
     Indication: POOR PERIPHERAL CIRCULATION
     Dosage: 30 MG, SOS
     Route: 048
     Dates: start: 20151206, end: 20151206
  85. PHOSPHOCREATINE SODIUM [Concomitant]
     Indication: PROPHYLAXIS
     Dosage: 1 G, SOS
     Route: 042
     Dates: start: 20151204, end: 20151204
  86. ALLERZIN//PROMETHAZINE HYDROCHLORIDE [Concomitant]
     Dosage: 25 MG, SOS
     Route: 030
     Dates: start: 20151218, end: 20151218
  87. CEFOTIAM [Concomitant]
     Active Substance: CEFOTIAM
     Indication: INFECTION PROPHYLAXIS
     Dosage: 1000 MG, SOS
     Route: 042
     Dates: start: 20151204, end: 20151210
  88. LEVOCARNITINE. [Concomitant]
     Active Substance: LEVOCARNITINE
     Dosage: 2 VIALS, QD
     Route: 042
     Dates: start: 20151204, end: 20151218
  89. MUCOSOLVAN [Concomitant]
     Active Substance: AMBROXOL HYDROCHLORIDE
     Dosage: 30 MG, SOS
     Route: 042
     Dates: start: 20151224, end: 20151224
  90. BASILIXIMAB [Suspect]
     Active Substance: BASILIXIMAB
     Indication: RENAL TRANSPLANT
     Dosage: 20 MG, QD
     Route: 065
     Dates: start: 20151203, end: 20151203
  91. PREDNISONE. [Suspect]
     Active Substance: PREDNISONE
     Dosage: 20 MG, UNK
     Route: 065
     Dates: start: 20151220
  92. TACROLIMUS. [Suspect]
     Active Substance: TACROLIMUS
     Dosage: 20 MG, QD
     Route: 065
     Dates: start: 20151207, end: 20151207
  93. MOXIFLOXACIN//MOXIFLOXACIN HYDROCHLORIDE [Concomitant]
     Dosage: 400 MG, SOS
     Route: 042
     Dates: start: 20151213, end: 20151213
  94. BISOPROLOL FUMARATE. [Concomitant]
     Active Substance: BISOPROLOL FUMARATE
     Dosage: 5 MG, QD
     Route: 048
     Dates: start: 20151223
  95. HEPARIN SODIUM. [Concomitant]
     Active Substance: HEPARIN SODIUM
     Dosage: 6250 IU, SOS
     Route: 042
     Dates: start: 20151213, end: 20151213
  96. CRAVIT [Concomitant]
     Active Substance: LEVOFLOXACIN
     Dosage: 100 ML, SOS
     Route: 042
     Dates: start: 20151220, end: 20151220
  97. ALOSTIN//ALPROSTADIL [Concomitant]
     Dosage: 10 OT, QD
     Route: 042
     Dates: start: 20160115, end: 20160121
  98. MEROPENEM. [Concomitant]
     Active Substance: MEROPENEM
     Indication: INFLAMMATION
     Dosage: 500 MG, SOS
     Route: 042
     Dates: start: 20151221, end: 20151221
  99. DESLANOSIDE [Concomitant]
     Active Substance: DESLANOSIDE
     Indication: CARDIAC FAILURE
     Dosage: 200 MG, SOS
     Route: 042
     Dates: start: 20151205, end: 20151205
  100. DICLOFENAC SODIUM W/LIDOCAINE HYDROCHLORIDE [Concomitant]
     Indication: SEIZURE
     Dosage: 1 AMPULE,SOS
     Route: 042
     Dates: start: 20151204, end: 20151204
  101. VANCOMYCIN HYDROCHLORIDE. [Concomitant]
     Active Substance: VANCOMYCIN HYDROCHLORIDE
     Indication: INFECTION PROPHYLAXIS
     Dosage: 500 MG, BID
     Route: 042
     Dates: start: 20151222, end: 20151222
  102. VANCOMYCIN HYDROCHLORIDE. [Concomitant]
     Active Substance: VANCOMYCIN HYDROCHLORIDE
     Indication: INFLAMMATION
     Dosage: 500 MG, SOS
     Route: 042
     Dates: start: 20151222, end: 20151222
  103. VANCOMYCIN HYDROCHLORIDE. [Concomitant]
     Active Substance: VANCOMYCIN HYDROCHLORIDE
     Dosage: 500 MG, SOS
     Route: 042
     Dates: start: 20151224, end: 20151230
  104. RECOMBINANT HUMAN ERYTHROPOIETIN [Concomitant]
     Active Substance: ERYTHROPOIETIN
     Indication: RED BLOOD CELL COUNT DECREASED
     Dosage: 1000 IU, SOS
     Route: 061
     Dates: start: 20151207, end: 20151207
  105. RECOMBINANT HUMAN ERYTHROPOIETIN [Concomitant]
     Active Substance: ERYTHROPOIETIN
     Dosage: 1000 IU, SOS
     Route: 061
     Dates: start: 20151218, end: 20151218
  106. FUROSEMID ^DAK^ [Concomitant]
     Dosage: 40 MG, SOS
     Route: 042
     Dates: start: 20151205, end: 20151205
  107. LEVOCARNITINE. [Concomitant]
     Active Substance: LEVOCARNITINE
     Indication: PROPHYLAXIS
     Dosage: 2 VIALS, SOS
     Route: 042
     Dates: start: 20151204, end: 20151204
  108. FK 506 [Concomitant]
     Active Substance: TACROLIMUS
     Indication: PROPHYLAXIS AGAINST TRANSPLANT REJECTION
     Dosage: 3 MG, QD
     Route: 065
     Dates: start: 20160118, end: 20160214
  109. SODIUM CHLORIDE COMPOUND INJECTION [Concomitant]
     Dosage: 500 ML, SOS
     Dates: start: 20160120, end: 20160120
  110. MOXIFLOXACIN//MOXIFLOXACIN HYDROCHLORIDE [Concomitant]
     Indication: INFECTION PROPHYLAXIS
     Dosage: 400 MG, SOS
     Route: 042
     Dates: start: 20151212, end: 20151212
  111. ALBUMIN [Concomitant]
     Active Substance: ALBUMIN HUMAN
     Dosage: 10 G, QD
     Route: 042
     Dates: start: 20151204, end: 20151206
  112. ADALAT [Concomitant]
     Active Substance: NIFEDIPINE
     Indication: HYPERTENSION
     Dosage: 30 MG, SOS
     Route: 048
     Dates: start: 20151206, end: 20151206
  113. LIQUORICE [Concomitant]
     Active Substance: LICORICE
     Indication: COUGH
     Dosage: 10 ML, TID
     Route: 048
     Dates: start: 20151212, end: 20151218
  114. LIQUORICE [Concomitant]
     Active Substance: LICORICE
     Dosage: 10 ML, TID
     Route: 048
     Dates: start: 20151219
  115. HEPARIN SODIUM. [Concomitant]
     Active Substance: HEPARIN SODIUM
     Indication: PRODUCT USED FOR UNKNOWN INDICATION
     Dosage: 6250 IU, QD
     Route: 042
     Dates: start: 20151204, end: 20151217
  116. PANTOPRAZOLE [Concomitant]
     Active Substance: PANTOPRAZOLE SODIUM
     Dosage: 40 MG, BID
     Route: 042
     Dates: start: 20151204, end: 20151220
  117. SMECTA [Concomitant]
     Active Substance: MONTMORILLONITE
     Dosage: 6 G, SOS
     Route: 048
     Dates: start: 20151207, end: 20151207
  118. VASOREL [Concomitant]
     Indication: PROPHYLAXIS
     Dosage: 20 MG, TID
     Route: 048
     Dates: start: 20151206, end: 20151223
  119. VANCOMYCIN HYDROCHLORIDE. [Concomitant]
     Active Substance: VANCOMYCIN HYDROCHLORIDE
     Dosage: 500 MG, SOS
     Route: 042
     Dates: start: 20151223, end: 20151223
  120. CETIRIZINE HYDROCHLORIDE. [Concomitant]
     Active Substance: CETIRIZINE HYDROCHLORIDE
     Indication: ALLERGY PROPHYLAXIS
     Dosage: 10 MG, SOS
     Route: 048
     Dates: start: 20151211, end: 20151211
  121. CETIRIZINE HYDROCHLORIDE. [Concomitant]
     Active Substance: CETIRIZINE HYDROCHLORIDE
     Dosage: 10 MG, SOS
     Route: 048
     Dates: start: 20151218, end: 20151218
  122. DOPAMINE HYCROCHLORIDE [Concomitant]
     Active Substance: DOPAMINE HYDROCHLORIDE
     Dosage: 10 MG, QD
     Route: 042
     Dates: start: 20151222, end: 20151223
  123. DOPAMINE HYCROCHLORIDE [Concomitant]
     Active Substance: DOPAMINE HYDROCHLORIDE
     Dosage: 10 MG, SOS
     Route: 048
     Dates: start: 20151228, end: 20151228
  124. MUCOSOLVAN [Concomitant]
     Active Substance: AMBROXOL HYDROCHLORIDE
     Dosage: 15 MG, SOS
     Route: 055
     Dates: start: 20151224, end: 20151224
  125. MUCOSOLVAN [Concomitant]
     Active Substance: AMBROXOL HYDROCHLORIDE
     Indication: PRODUCTIVE COUGH
     Dosage: 30 MG, TID
     Route: 042
     Dates: start: 20151208, end: 20151223
  126. MUCOSOLVAN [Concomitant]
     Active Substance: AMBROXOL HYDROCHLORIDE
     Dosage: 30 MG, SOS
     Route: 042
     Dates: start: 20151223, end: 20151223
  127. METHYLPREDNISOLONE. [Suspect]
     Active Substance: METHYLPREDNISOLONE
     Indication: ALLERGY PROPHYLAXIS
     Dosage: 420 MG, QD
     Route: 065
     Dates: start: 20151204, end: 20151205
  128. GLUTATHIONE [Concomitant]
     Active Substance: GLUTATHIONE
     Indication: PROPHYLAXIS
     Dosage: 900 MG, QD
     Route: 042
     Dates: start: 20151204, end: 20151204
  129. ADALAT [Concomitant]
     Active Substance: NIFEDIPINE
     Dosage: 30 MG, SOS
     Route: 048
     Dates: start: 20151209, end: 20151209
  130. PHENOBARB//PHENOBARBITAL SODIUM [Concomitant]
     Indication: ANAESTHETIC PREMEDICATION
     Dosage: 100 MG, SOS
     Route: 030
     Dates: start: 20151203, end: 20151203
  131. CRAVIT [Concomitant]
     Active Substance: LEVOFLOXACIN
     Indication: INFECTION PROPHYLAXIS
     Dosage: 100 ML, SOS
     Route: 042
     Dates: start: 20151204, end: 20151204
  132. CRAVIT [Concomitant]
     Active Substance: LEVOFLOXACIN
     Dosage: 100 ML, QD
     Route: 042
     Dates: start: 20151214, end: 20151217
  133. ALOSTIN//ALPROSTADIL [Concomitant]
     Dosage: 10 OT, QD
     Route: 042
     Dates: start: 20151224, end: 20151230
  134. ALBUMIN HUMAN [Concomitant]
     Active Substance: ALBUMIN HUMAN
     Indication: SUPPLEMENTATION THERAPY
     Dosage: 10 G, SOS
     Route: 042
     Dates: start: 20151203, end: 20151203
  135. DILTIAZEM HYDROCHLORIDE. [Concomitant]
     Active Substance: DILTIAZEM HYDROCHLORIDE
     Dosage: 30 MG, BID
     Route: 048
     Dates: start: 20151206, end: 20151209
  136. CEPHAZOLINE SODIUM [Concomitant]
     Active Substance: CEFAZOLIN SODIUM
     Indication: SKIN TEST
     Dosage: 500 MG, SOS
     Route: 023
     Dates: start: 20151204, end: 20151204
  137. DOPAMINE HYCROCHLORIDE [Concomitant]
     Active Substance: DOPAMINE HYDROCHLORIDE
     Dosage: 10 MG, SOS
     Route: 042
     Dates: start: 20151222, end: 20151222
  138. DOPAMINE HYCROCHLORIDE [Concomitant]
     Active Substance: DOPAMINE HYDROCHLORIDE
     Dosage: 10 MG, SOS
     Route: 048
     Dates: start: 20160101, end: 20160108
  139. ALLERZIN//PROMETHAZINE HYDROCHLORIDE [Concomitant]
     Indication: ALLERGY PROPHYLAXIS
     Dosage: 25 MG, SOS
     Route: 030
     Dates: start: 20151211, end: 20151211
  140. RECOMBINANT HUMAN ERYTHROPOIETIN [Concomitant]
     Active Substance: ERYTHROPOIETIN
     Dosage: 1000 IU, SOS
     Route: 061
     Dates: start: 20151216, end: 20151216
  141. FUROSEMID ^DAK^ [Concomitant]
     Dosage: 40 MG, SOS
     Route: 042
     Dates: start: 20151221, end: 20151221

REACTIONS (14)
  - Cough [Recovered/Resolved]
  - Blood creatinine increased [Not Recovered/Not Resolved]
  - Bronchiolitis [Not Recovered/Not Resolved]
  - Upper respiratory tract infection [Recovering/Resolving]
  - Diarrhoea [Recovering/Resolving]
  - Pneumonia [Recovered/Resolved]
  - Body temperature increased [Recovered/Resolved]
  - Renal hypertension [Not Recovered/Not Resolved]
  - Throat irritation [Not Recovered/Not Resolved]
  - Incision site pain [Recovering/Resolving]
  - Nephrogenic anaemia [Not Recovered/Not Resolved]
  - Nasopharyngitis [Not Recovered/Not Resolved]
  - Delayed graft function [Recovered/Resolved]
  - Productive cough [Recovered/Resolved]

NARRATIVE: CASE EVENT DATE: 20151205
